FAERS Safety Report 23757517 (Version 1)
Quarter: 2024Q2

REPORT INFORMATION
  Report Type: Spontaneous
  Country: IT (occurrence: IT)
  Receive Date: 20240418
  Receipt Date: 20240418
  Transmission Date: 20240716
  Serious: Yes (Other)
  Sender: FDA-Public Use
  Company Number: None

PATIENT
  Age: 73 Year
  Sex: Male

DRUGS (6)
  1. BEVACIZUMAB [Suspect]
     Active Substance: BEVACIZUMAB
     Indication: Adenocarcinoma of colon
     Dosage: 440 MG, CYCLIC
     Route: 042
     Dates: start: 20240125, end: 20240125
  2. LONSURF [Suspect]
     Active Substance: TIPIRACIL HYDROCHLORIDE\TRIFLURIDINE
     Indication: Adenocarcinoma of colon
     Dosage: 60 MG, 2X/DAY (3 DF 20 MG EVERY 12 HOURS)
     Route: 048
     Dates: start: 20240126, end: 20240206
  3. LYRICA [Concomitant]
     Active Substance: PREGABALIN
     Dosage: UNK
  4. ESOMEPRAZOL MAGNESIO TRI HIDRATADO [Concomitant]
     Dosage: UNK
  5. LASIX [Concomitant]
     Active Substance: FUROSEMIDE
     Dosage: UNK
  6. EDOXABAN TOSYLATE [Concomitant]
     Active Substance: EDOXABAN TOSYLATE
     Dosage: UNK

REACTIONS (1)
  - Thrombocytopenia [Recovered/Resolved]

NARRATIVE: CASE EVENT DATE: 20240205
